FAERS Safety Report 14447312 (Version 1)
Quarter: 2018Q1

REPORT INFORMATION
  Report Type: Spontaneous
  Country: US (occurrence: US)
  Receive Date: 20180126
  Receipt Date: 20180126
  Transmission Date: 20180509
  Serious: No
  Sender: FDA-Public Use
  Company Number: US-AMNEAL PHARMACEUTICALS-2017AMN00036

PATIENT
  Age: 69 Year
  Sex: Female
  Weight: 55.33 kg

DRUGS (9)
  1. CITALOPRAM HYDROBROMIDE. [Suspect]
     Active Substance: CITALOPRAM HYDROBROMIDE
     Indication: ANXIETY
     Dosage: 40 MG, 1X/DAY
     Route: 048
     Dates: start: 20161228, end: 20170115
  2. ASPIRIN. [Concomitant]
     Active Substance: ASPIRIN
     Dosage: 81 MG, 1X/DAY
  3. VENTOLIN [Concomitant]
     Active Substance: ALBUTEROL SULFATE
  4. BIOTIN [Concomitant]
     Active Substance: BIOTIN
  5. FLAXSEED [Concomitant]
     Active Substance: FLAX SEED
     Dosage: 1000 UNK, 1X/DAY
  6. ATORVASTATIN [Concomitant]
     Active Substance: ATORVASTATIN
     Dosage: 40 MG, 1X/DAY
  7. RANITIDINE. [Concomitant]
     Active Substance: RANITIDINE
     Dosage: 150 MG, 1X/DAY
  8. VITAMIN D3 [Concomitant]
     Active Substance: CHOLECALCIFEROL
     Dosage: 1000 UNK, 1X/DAY
  9. ADVAIN [Concomitant]
     Dosage: UNK, 2X/DAY

REACTIONS (9)
  - Headache [Recovered/Resolved]
  - Allodynia [Recovering/Resolving]
  - Balance disorder [Unknown]
  - Fatigue [Unknown]
  - Somnolence [Recovered/Resolved]
  - Feeling abnormal [Recovered/Resolved]
  - Product substitution issue [Recovered/Resolved]
  - Withdrawal syndrome [Unknown]
  - Dizziness [Recovered/Resolved]

NARRATIVE: CASE EVENT DATE: 20170102
